FAERS Safety Report 14620434 (Version 1)
Quarter: 2018Q1

REPORT INFORMATION
  Report Type: Spontaneous
  Country: US (occurrence: US)
  Receive Date: 20180309
  Receipt Date: 20180309
  Transmission Date: 20180509
  Serious: Yes (Other)
  Sender: FDA-Public Use
  Company Number: US-ALLERGAN-1760940US

PATIENT
  Age: 84 Year
  Sex: Male

DRUGS (3)
  1. COSOPT [Concomitant]
     Active Substance: DORZOLAMIDE HYDROCHLORIDE\TIMOLOL MALEATE
     Indication: CARDIOVASCULAR DISORDER
     Dosage: UNK
     Route: 065
  2. BABY ASPIRIN [Concomitant]
     Active Substance: ASPIRIN
     Indication: PRODUCT USED FOR UNKNOWN INDICATION
     Route: 065
  3. OZURDEX [Suspect]
     Active Substance: DEXAMETHASONE
     Indication: RETINAL VEIN OCCLUSION
     Dosage: 0.7 MG, SINGLE
     Route: 031
     Dates: start: 20170906, end: 20170924

REACTIONS (8)
  - Endophthalmitis [Recovering/Resolving]
  - Visual impairment [Unknown]
  - Open angle glaucoma [Unknown]
  - Eye pain [Recovering/Resolving]
  - Lacrimation increased [Unknown]
  - Cataract [Unknown]
  - Vitreous opacities [Recovered/Resolved]
  - Intraocular lens implant [Unknown]

NARRATIVE: CASE EVENT DATE: 20170923
